FAERS Safety Report 6228330-1 (Version None)
Quarter: 2009Q2

REPORT INFORMATION
  Report Type: 
  Country: None (occurrence: None)
  Receive Date: 20090610
  Receipt Date: 20090610
  Transmission Date: 20091009
  Serious: No
  Sender: FDA-Public Use
  Company Number: None

PATIENT
  Sex: Female
  Weight: 69.8 kg

DRUGS (1)
  1. HEPARIN [Suspect]
     Indication: ANTICOAGULANT THERAPY
     Dosage: 4,500 UNITS ONCE IV
     Route: 042
     Dates: start: 20090608

REACTIONS (2)
  - COAGULATION TIME SHORTENED [None]
  - PRODUCT QUALITY ISSUE [None]
